FAERS Safety Report 25074518 (Version 4)
Quarter: 2025Q4

REPORT INFORMATION
  Report Type: Report from Study
  Country: US (occurrence: US)
  Receive Date: 20250313
  Receipt Date: 20251221
  Transmission Date: 20260119
  Serious: No
  Sender: MERCK SHARP & DOHME LLC
  Company Number: US-009507513-2260898

PATIENT
  Sex: Female
  Weight: 121.54 kg

DRUGS (4)
  1. WINREVAIR [Suspect]
     Active Substance: SOTATERCEPT-CSRK
     Indication: Pulmonary arterial hypertension
     Dosage: 0.7 MILLILITER, EVERY 3 WEEKS
     Route: 058
     Dates: start: 202411
  2. WINREVAIR [Suspect]
     Active Substance: SOTATERCEPT-CSRK
     Dosage: 1.7 MILLILITER, Q3W MULTIPLE
     Dates: start: 202411
  3. REMODULIN [Suspect]
     Active Substance: TREPROSTINIL
     Indication: Pulmonary arterial hypertension
     Dosage: CONCENTRATION 5 MG/ML, 0.6 MICROGRAM/KG
     Route: 041
     Dates: start: 202303
  4. OXYGEN [Concomitant]
     Active Substance: OXYGEN
     Dosage: 3L OF OXYGEN AT NIGHT ONLY
     Route: 065

REACTIONS (9)
  - White blood cell count decreased [Unknown]
  - Hunger [Unknown]
  - Abnormal weight gain [Unknown]
  - Flushing [Unknown]
  - Headache [Recovered/Resolved]
  - Pain in extremity [Recovered/Resolved]
  - Pain in jaw [Recovered/Resolved]
  - Anxiety [Unknown]
  - Dyspnoea exertional [Not Recovered/Not Resolved]

NARRATIVE: CASE EVENT DATE: 20240101
